FAERS Safety Report 9413080 (Version 1)
Quarter: 2013Q3

REPORT INFORMATION
  Report Type: Report from Study
  Country: HU (occurrence: HU)
  Receive Date: 20130722
  Receipt Date: 20130722
  Transmission Date: 20140515
  Serious: Yes (Hospitalization)
  Sender: FDA-Public Use
  Company Number: HU-GLAXOSMITHKLINE-B0909522A

PATIENT
  Sex: Female

DRUGS (12)
  1. SERETIDE DISKUS [Suspect]
     Indication: ASTHMA
     Dosage: 1PUFF TWICE PER DAY
     Route: 055
  2. ASPIRIN PROTECT [Concomitant]
     Dosage: 100MG PER DAY
  3. CO-PRENESSA [Concomitant]
  4. AMLOZEK [Concomitant]
     Dosage: 5MG PER DAY
  5. FURON [Concomitant]
     Dosage: 40MG PER DAY
  6. VEROSPIRON [Concomitant]
     Dosage: 25MG PER DAY
  7. MODUXIN [Concomitant]
     Dosage: 35MG TWICE PER DAY
  8. RILMENIDINE [Concomitant]
     Dosage: 1MG PER DAY
  9. MYDETON [Concomitant]
     Dosage: 150MG TWICE PER DAY
  10. FRONTIN [Concomitant]
     Dosage: .5MG PER DAY
  11. TEGRETOL [Concomitant]
     Dosage: 200MG PER DAY
  12. SYNCUMAR [Concomitant]
     Dosage: 14MG PER DAY

REACTIONS (2)
  - Oral discomfort [Not Recovered/Not Resolved]
  - Tongue discolouration [Unknown]
